FAERS Safety Report 13634601 (Version 1)
Quarter: 2017Q2

REPORT INFORMATION
  Report Type: Spontaneous
  Country: US (occurrence: US)
  Receive Date: 20170531
  Receipt Date: 20170531
  Transmission Date: 20170830
  Serious: No
  Sender: FDA-Public Use
  Company Number: US-ASTELLAS-1641296

PATIENT
  Sex: Male

DRUGS (6)
  1. TARCEVA [Suspect]
     Active Substance: ERLOTINIB HYDROCHLORIDE
     Indication: PRODUCT USED FOR UNKNOWN INDICATION
     Route: 048
     Dates: start: 20140701
  2. AMBIEN [Concomitant]
     Active Substance: ZOLPIDEM TARTRATE
  3. LEVAQUIN [Concomitant]
     Active Substance: LEVOFLOXACIN
  4. ALBUTEROL. [Concomitant]
     Active Substance: ALBUTEROL
  5. DEXAMETHASONE. [Concomitant]
     Active Substance: DEXAMETHASONE
  6. ADVIL [Concomitant]
     Active Substance: IBUPROFEN

REACTIONS (2)
  - Drug ineffective [Unknown]
  - No adverse event [Unknown]
